FAERS Safety Report 9454069 (Version 2)
Quarter: 2013Q3

REPORT INFORMATION
  Report Type: Spontaneous
  Country: LT (occurrence: LT)
  Receive Date: 20130812
  Receipt Date: 20130920
  Transmission Date: 20140515
  Serious: Yes (Death, Hospitalization, Other)
  Sender: FDA-Public Use
  Company Number: LT-ASTRAZENECA-2013SE62495

PATIENT
  Age: 66 Year
  Sex: Male

DRUGS (3)
  1. BRILIQUE [Suspect]
     Indication: PERCUTANEOUS CORONARY INTERVENTION
     Route: 048
     Dates: start: 201305, end: 201307
  2. NEBILET [Concomitant]
  3. ASPIRIN [Concomitant]

REACTIONS (5)
  - Renal vein thrombosis [Fatal]
  - Abdominal distension [Unknown]
  - Tremor [Unknown]
  - Feeling abnormal [Unknown]
  - Urinary tract infection [Unknown]
